FAERS Safety Report 7901638-7 (Version None)
Quarter: 2011Q4

REPORT INFORMATION
  Report Type: 
  Country: None (occurrence: None)
  Receive Date: 20111108
  Receipt Date: 20111026
  Transmission Date: 20120403
  Serious: Yes (Other)
  Sender: FDA-Public Use
  Company Number: DE-ROCHE-800035

PATIENT
  Sex: Female
  Weight: 52 kg

DRUGS (2)
  1. MABTHERA [Suspect]
     Indication: RHEUMATOID ARTHRITIS
     Dosage: LAST GIVEN DOSAGE PRIOR TO THE EVENT: MAY-2011
     Route: 042
  2. MABTHERA [Suspect]
     Route: 042

REACTIONS (2)
  - BUNDLE BRANCH BLOCK LEFT [None]
  - HYPERTENSION [None]
